FAERS Safety Report 8370879-X (Version None)
Quarter: 2012Q2

REPORT INFORMATION
  Report Type: 
  Country: None (occurrence: None)
  Receive Date: 20120518
  Receipt Date: 20110831
  Transmission Date: 20120825
  Serious: No
  Sender: FDA-Public Use
  Company Number: US-ASTRAZENECA-2011SE53062

PATIENT
  Age: 82 Year
  Sex: Female

DRUGS (5)
  1. AMLODIPINE BESYLATE [Concomitant]
  2. DICLOFENAC SODIUM [Concomitant]
  3. PROPAFENONE HCL [Concomitant]
  4. PRILOSEC OTC [Suspect]
     Route: 048
     Dates: end: 20110830
  5. POTASSIUM CHLORIDE [Concomitant]

REACTIONS (2)
  - BODY HEIGHT DECREASED [None]
  - OSTEOPOROSIS [None]
